FAERS Safety Report 21177528 (Version 1)
Quarter: 2022Q3

REPORT INFORMATION
  Report Type: Spontaneous
  Country: US (occurrence: US)
  Receive Date: 20220805
  Receipt Date: 20220805
  Transmission Date: 20221027
  Serious: No
  Sender: FDA-Public Use
  Company Number: US-ALLERGAN-2222685US

PATIENT
  Sex: Female
  Weight: 56.699 kg

DRUGS (5)
  1. VUITY [Suspect]
     Active Substance: PILOCARPINE HYDROCHLORIDE
     Indication: Myopia
     Dosage: 1 TO 2 TIMES A WEEK
     Dates: start: 202206
  2. VUITY [Suspect]
     Active Substance: PILOCARPINE HYDROCHLORIDE
     Dosage: 2 GTT, QD
     Route: 047
     Dates: start: 2022, end: 202206
  3. PROPRANOLOL HCL 10mg Tab [Concomitant]
     Indication: Hypertension
     Dosage: UNK
  4. ESTRADIOL [Concomitant]
     Active Substance: ESTRADIOL
     Indication: Hormone therapy
     Dosage: UNK
  5. AMLODIPINE [Concomitant]
     Active Substance: AMLODIPINE BESYLATE
     Indication: Hypertension
     Dosage: UNK

REACTIONS (5)
  - Burning sensation [Recovered/Resolved]
  - Inappropriate schedule of product administration [Unknown]
  - Off label use [Unknown]
  - Drug effective for unapproved indication [Unknown]
  - Drug ineffective for unapproved indication [Unknown]

NARRATIVE: CASE EVENT DATE: 20220101
